FAERS Safety Report 5058369-3 (Version None)
Quarter: 2006Q2

REPORT INFORMATION
  Report Type: 
  Country: None (occurrence: None)
  Receive Date: 20060628
  Receipt Date: 20060223
  Transmission Date: 20061013
  Serious: Yes (Hospitalization)
  Sender: FDA-Public Use
  Company Number: 437907

PATIENT
  Age: 60 Year
  Sex: Female

DRUGS (4)
  1. KLONOPIN [Suspect]
     Indication: ANXIETY
     Dosage: ORAL
     Route: 048
  2. LEXAPRO [Concomitant]
  3. EFFEXOR [Concomitant]
  4. DEPAKOTE [Concomitant]

REACTIONS (4)
  - DRUG WITHDRAWAL SYNDROME [None]
  - MEMORY IMPAIRMENT [None]
  - PNEUMONIA [None]
  - SEPSIS [None]
